FAERS Safety Report 5364736-0 (Version None)
Quarter: 2007Q2

REPORT INFORMATION
  Report Type: 
  Country: None (occurrence: None)
  Receive Date: 20070530
  Receipt Date: 20070304
  Transmission Date: 20071010
  Serious: No
  Sender: FDA-Public Use
  Company Number: 2006PV008820

PATIENT
  Age: 57 Year
  Sex: Female
  Weight: 89.3586 kg

DRUGS (8)
  1. BYETTA [Suspect]
     Indication: DIABETES MELLITUS NON-INSULIN-DEPENDENT
     Dosage: 5 MCG; BID; SC, 10 MCG; ; SC, 5 MCG; ; SC, 5 MCG; BID;
     Route: 058
     Dates: start: 20060101, end: 20060101
  2. BYETTA [Suspect]
     Indication: DIABETES MELLITUS NON-INSULIN-DEPENDENT
     Dosage: 5 MCG; BID; SC, 10 MCG; ; SC, 5 MCG; ; SC, 5 MCG; BID;
     Route: 058
     Dates: start: 20060101, end: 20060101
  3. BYETTA [Suspect]
     Indication: DIABETES MELLITUS NON-INSULIN-DEPENDENT
     Dosage: 5 MCG; BID; SC, 10 MCG; ; SC, 5 MCG; ; SC, 5 MCG; BID;
     Route: 058
     Dates: start: 20060101
  4. BYETTA [Suspect]
     Indication: DIABETES MELLITUS NON-INSULIN-DEPENDENT
     Dosage: 5 MCG; BID; SC, 10 MCG; ; SC, 5 MCG; ; SC, 5 MCG; BID;
     Route: 058
     Dates: start: 20060103
  5. ACTOS [Concomitant]
  6. METFORMIN HCL [Concomitant]
  7. DRAMAMINE [Concomitant]
  8. SCOPOLAMINE [Concomitant]

REACTIONS (10)
  - ABDOMINAL DISTENSION [None]
  - ANXIETY [None]
  - BLOOD GLUCOSE DECREASED [None]
  - CYSTITIS INTERSTITIAL [None]
  - DECREASED APPETITE [None]
  - DIZZINESS [None]
  - FEELING JITTERY [None]
  - GAIT DISTURBANCE [None]
  - NAUSEA [None]
  - WEIGHT DECREASED [None]
